FAERS Safety Report 15033825 (Version 1)
Quarter: 2018Q2

REPORT INFORMATION
  Report Type: Report from Study
  Country: None (occurrence: RO)
  Receive Date: 20180619
  Receipt Date: 20180619
  Transmission Date: 20180711
  Serious: Yes (Hospitalization, Other)
  Sender: FDA-Public Use
  Company Number: RO-ABBVIE-18P-135-2390088-00

PATIENT
  Age: 73 Year
  Sex: Female

DRUGS (7)
  1. VIEKIRAX [Suspect]
     Active Substance: OMBITASVIR\PARITAPREVIR\RITONAVIR
     Indication: HEPATITIS C
     Route: 048
     Dates: start: 20171219, end: 20180312
  2. DIOVAN [Concomitant]
     Active Substance: VALSARTAN
     Indication: CARDIAC DISORDER
     Route: 048
  3. BETALOK ZOK [Concomitant]
     Indication: CARDIAC DISORDER
     Route: 048
  4. VIEKIRAX [Suspect]
     Active Substance: OMBITASVIR\PARITAPREVIR\RITONAVIR
     Indication: HEPATIC CIRRHOSIS
  5. EXVIERA [Suspect]
     Active Substance: DASABUVIR
     Indication: HEPATITIS C
     Route: 048
     Dates: start: 20171219, end: 20180312
  6. EXVIERA [Suspect]
     Active Substance: DASABUVIR
     Indication: HEPATIC CIRRHOSIS
  7. TERTENSIF [Concomitant]
     Active Substance: INDAPAMIDE
     Indication: CARDIAC DISORDER
     Route: 048

REACTIONS (5)
  - Syncope [Recovering/Resolving]
  - Blood creatinine increased [Recovering/Resolving]
  - Renal failure [Recovering/Resolving]
  - Blood potassium increased [Recovering/Resolving]
  - Blood pressure fluctuation [Recovering/Resolving]

NARRATIVE: CASE EVENT DATE: 201806
